FAERS Safety Report 15685265 (Version 1)
Quarter: 2018Q4

REPORT INFORMATION
  Report Type: Spontaneous
  Country: GB (occurrence: GB)
  Receive Date: 20181204
  Receipt Date: 20181204
  Transmission Date: 20190205
  Serious: Yes (Other)
  Sender: FDA-Public Use
  Company Number: PHHY2018GB169957

PATIENT
  Age: 34 Year
  Sex: Male
  Weight: 85 kg

DRUGS (1)
  1. PHENOXYMETHYLPENICILLIN [Suspect]
     Active Substance: PENICILLIN V
     Indication: TONSILLITIS
     Dosage: 2000 MG, QD
     Route: 048
     Dates: start: 20181106, end: 20181109

REACTIONS (2)
  - Noninfective gingivitis [Recovering/Resolving]
  - Toothache [Unknown]

NARRATIVE: CASE EVENT DATE: 20181108
